FAERS Safety Report 17060579 (Version 1)
Quarter: 2019Q4

REPORT INFORMATION
  Report Type: Spontaneous
  Country: CN (occurrence: CN)
  Receive Date: 20191121
  Receipt Date: 20191121
  Transmission Date: 20200122
  Serious: Yes (Other)
  Sender: FDA-Public Use
  Company Number: CN-ASTRAZENECA-2019SF59913

PATIENT
  Age: 44 Year
  Sex: Male

DRUGS (1)
  1. IRESSA [Suspect]
     Active Substance: GEFITINIB
     Indication: NON-SMALL CELL LUNG CANCER
     Dosage: USED FOR 11 MONTHS IN TOTAL
     Route: 048

REACTIONS (2)
  - Acquired gene mutation [Unknown]
  - Drug resistance [Unknown]
